FAERS Safety Report 7849537-3 (Version None)
Quarter: 2011Q4

REPORT INFORMATION
  Report Type: 
  Country: None (occurrence: None)
  Receive Date: 20111024
  Receipt Date: 20111006
  Transmission Date: 20120403
  Serious: Yes (Other)
  Sender: FDA-Public Use
  Company Number: 11-632

PATIENT
  Age: 70 Year
  Sex: Male
  Weight: 95 kg

DRUGS (1)
  1. ALEVE (CAPLET) [Suspect]
     Indication: PAIN
     Dosage: 220MG, ONCE, ORAL
     Route: 048
     Dates: start: 20111001, end: 20111001

REACTIONS (8)
  - LOSS OF CONSCIOUSNESS [None]
  - MEMORY IMPAIRMENT [None]
  - PRODUCT FORMULATION ISSUE [None]
  - PRURITUS GENERALISED [None]
  - VISION BLURRED [None]
  - URINARY INCONTINENCE [None]
  - BLOOD PRESSURE DECREASED [None]
  - NAUSEA [None]
